FAERS Safety Report 8908489 (Version 2)
Quarter: 2012Q4

REPORT INFORMATION
  Report Type: 
  Country: US (occurrence: US)
  Receive Date: 20121114
  Receipt Date: 20121205
  Transmission Date: 20130627
  Serious: Yes (Other)
  Sender: FDA-Public Use
  Company Number: US-PFIZER INC-2012281220

PATIENT
  Age: 53 Year
  Sex: Female

DRUGS (3)
  1. XALKORI [Suspect]
     Indication: LUNG NEOPLASM MALIGNANT
     Dosage: 250 mg, 2x/day
     Dates: start: 20120813
  2. XALKORI [Suspect]
     Dosage: 250 mg, 2x/day
     Dates: start: 20120813
  3. NAPROXEN SODIUM [Concomitant]
     Dosage: UNK

REACTIONS (3)
  - Pneumonia [Unknown]
  - Nausea [Not Recovered/Not Resolved]
  - Pain [Unknown]
